FAERS Safety Report 6402024-1 (Version None)
Quarter: 2009Q4

REPORT INFORMATION
  Report Type: 
  Country: None (occurrence: None)
  Receive Date: 20091015
  Receipt Date: 20091008
  Transmission Date: 20100525
  Serious: Yes (Hospitalization)
  Sender: FDA-Public Use
  Company Number: CH-JNJFOC-20091002402

PATIENT
  Age: 60 Year
  Sex: Female

DRUGS (7)
  1. RISPERDAL [Suspect]
     Route: 048
     Dates: start: 20090604, end: 20090708
  2. RISPERDAL [Suspect]
     Route: 048
     Dates: start: 20090604, end: 20090708
  3. RISPERDAL [Suspect]
     Indication: SCHIZOPHRENIA, PARANOID TYPE
     Route: 048
     Dates: start: 20090604, end: 20090708
  4. LEPONEX [Suspect]
     Route: 048
     Dates: end: 20090717
  5. LEPONEX [Suspect]
     Route: 048
     Dates: end: 20090717
  6. LEPONEX [Suspect]
     Route: 048
     Dates: end: 20090717
  7. LEPONEX [Suspect]
     Indication: DRUG USE FOR UNKNOWN INDICATION
     Route: 048
     Dates: end: 20090717

REACTIONS (1)
  - MYOCLONUS [None]
